FAERS Safety Report 9579435 (Version 2)
Quarter: 2013Q4

REPORT INFORMATION
  Report Type: Spontaneous
  Country: US (occurrence: US)
  Receive Date: 20131001
  Receipt Date: 20131001
  Transmission Date: 20140711
  Serious: No
  Sender: FDA-Public Use
  Company Number: US-AMGEN-USASP2013017769

PATIENT
  Age: 51 Year
  Sex: Female
  Weight: 53.06 kg

DRUGS (6)
  1. ENBREL [Suspect]
     Indication: PSORIASIS
     Dosage: 50 MG, QWK
     Route: 058
     Dates: start: 20120915, end: 201301
  2. ENBREL [Suspect]
     Indication: PSORIATIC ARTHROPATHY
  3. ALEVE [Concomitant]
     Dosage: UNK
     Route: 048
  4. CALCIUM VIT D [Concomitant]
     Dosage: UNK
     Route: 048
  5. MAGNESIUM [Concomitant]
     Dosage: UNK
     Route: 048
  6. MULTIVITAMINS, PLAIN [Concomitant]
     Dosage: UNK
     Route: 048

REACTIONS (4)
  - Pain in extremity [Not Recovered/Not Resolved]
  - Psoriasis [Not Recovered/Not Resolved]
  - Drug effect incomplete [Not Recovered/Not Resolved]
  - Arthralgia [Unknown]
